FAERS Safety Report 9442985 (Version 1)
Quarter: 2013Q3

REPORT INFORMATION
  Report Type: Spontaneous
  Country: US (occurrence: None)
  Receive Date: 20130805
  Receipt Date: 20130805
  Transmission Date: 20140515
  Serious: Yes (Other)
  Sender: FDA-Public Use
  Company Number: None

PATIENT
  Age: 68 Year
  Sex: Male
  Weight: 79.38 kg

DRUGS (1)
  1. HYDROCODONE [Suspect]
     Indication: PAIN
     Dates: start: 20120829, end: 20130829

REACTIONS (1)
  - Drug ineffective [None]
